FAERS Safety Report 21418463 (Version 2)
Quarter: 2022Q4

REPORT INFORMATION
  Report Type: Spontaneous
  Country: US (occurrence: US)
  Receive Date: 20221006
  Receipt Date: 20221104
  Transmission Date: 20230112
  Serious: Yes (Other)
  Sender: FDA-Public Use
  Company Number: US-BAYER-2022A133336

PATIENT
  Age: 47 Year
  Sex: Female
  Weight: 59.42 kg

DRUGS (1)
  1. MIRENA [Suspect]
     Active Substance: LEVONORGESTREL
     Dosage: 20?G/DAY
     Route: 015
     Dates: start: 20220726

REACTIONS (4)
  - Embedded device [Not Recovered/Not Resolved]
  - Genital haemorrhage [None]
  - Device placement issue [None]
  - Device defective [None]

NARRATIVE: CASE EVENT DATE: 20220101
